FAERS Safety Report 10410025 (Version 1)
Quarter: 2014Q3

REPORT INFORMATION
  Report Type: Spontaneous
  Country: DK (occurrence: DK)
  Receive Date: 20140826
  Receipt Date: 20140826
  Transmission Date: 20150326
  Serious: Yes (Hospitalization)
  Sender: FDA-Public Use
  Company Number: PHHY2014DK102898

PATIENT
  Age: 78 Year
  Sex: Female

DRUGS (7)
  1. PINEX [Concomitant]
     Active Substance: ACETAMINOPHEN
  2. ROPINIROL KRKA [Concomitant]
  3. METHOTREXATE (METHOTREXATE SODIUM) [Suspect]
     Active Substance: METHOTREXATE SODIUM
     Indication: RHEUMATOID ARTHRITIS
     Dosage: 7.5 MG, UNK
     Route: 048
     Dates: start: 20140228
  4. PANTOPRAZOL ACTAVIS [Concomitant]
     Active Substance: PANTOPRAZOLE SODIUM
  5. ZOVIR [Concomitant]
     Active Substance: ACYCLOVIR
  6. ONDANSETRON [Concomitant]
     Active Substance: ONDANSETRON
  7. CENTYL MITE W/POTASSIUM CHLORIDE [Concomitant]

REACTIONS (2)
  - Gastrooesophageal reflux disease [Recovered/Resolved]
  - Gastrointestinal pain [Recovered/Resolved]

NARRATIVE: CASE EVENT DATE: 20140629
